FAERS Safety Report 11342539 (Version 3)
Quarter: 2015Q3

REPORT INFORMATION
  Report Type: Spontaneous
  Country: JP (occurrence: JP)
  Receive Date: 20150805
  Receipt Date: 20150910
  Transmission Date: 20151125
  Serious: Yes (Death)
  Sender: FDA-Public Use
  Company Number: JP-OTSUKA-2015_006539

PATIENT

DRUGS (12)
  1. LASIX M [Concomitant]
     Active Substance: FUROSEMIDE
     Indication: PRODUCT USED FOR UNKNOWN INDICATION
     Dosage: UNK
     Route: 042
     Dates: start: 20150714, end: 20150720
  2. FLUITRAN [Concomitant]
     Active Substance: TRICHLORMETHIAZIDE
     Indication: PRODUCT USED FOR UNKNOWN INDICATION
     Dosage: 2 MG, QD
     Route: 048
     Dates: start: 20150604, end: 20150725
  3. PARIET [Concomitant]
     Active Substance: RABEPRAZOLE SODIUM
     Indication: PRODUCT USED FOR UNKNOWN INDICATION
     Dosage: 10 MG, QD
     Route: 048
     Dates: start: 20150409, end: 20150725
  4. VERAPAMIL [Concomitant]
     Active Substance: VERAPAMIL HYDROCHLORIDE
     Indication: PRODUCT USED FOR UNKNOWN INDICATION
     Dosage: 80 MG/DAY
     Route: 048
     Dates: start: 20150409, end: 20150725
  5. PRAZAXA [Concomitant]
     Active Substance: DABIGATRAN ETEXILATE MESYLATE
     Indication: PRODUCT USED FOR UNKNOWN INDICATION
     Dosage: 220 MG/DAY
     Route: 048
     Dates: start: 20150416, end: 20150725
  6. FEBURIC [Concomitant]
     Active Substance: FEBUXOSTAT
     Indication: PRODUCT USED FOR UNKNOWN INDICATION
     Dosage: 20 MG, QD
     Route: 048
     Dates: start: 20150714, end: 20150725
  7. SAMSCA [Suspect]
     Active Substance: TOLVAPTAN
     Indication: CARDIAC FAILURE
     Dosage: 7.5 MG, QD
     Route: 048
     Dates: start: 20150721, end: 20150725
  8. SPIRONOLACTONE. [Concomitant]
     Active Substance: SPIRONOLACTONE
     Indication: PRODUCT USED FOR UNKNOWN INDICATION
     Dosage: 25 MG, QD
     Route: 048
     Dates: start: 20150416, end: 20150725
  9. MAINTATE [Concomitant]
     Active Substance: BISOPROLOL FUMARATE
     Indication: PRODUCT USED FOR UNKNOWN INDICATION
     Dosage: 2.5 MG, QD
     Route: 048
     Dates: start: 20150409, end: 20150725
  10. SITAGLIPTIN PHOSPHATE [Concomitant]
     Active Substance: SITAGLIPTIN PHOSPHATE
     Indication: PRODUCT USED FOR UNKNOWN INDICATION
     Dosage: 50 MG, QD
     Route: 048
     Dates: start: 20150521, end: 20150725
  11. K-SUPPLY [Concomitant]
     Active Substance: POTASSIUM CHLORIDE
     Indication: PRODUCT USED FOR UNKNOWN INDICATION
     Dosage: 1200 MG/DAY
     Route: 048
     Dates: start: 20150717, end: 20150725
  12. FUROSEMIDE. [Concomitant]
     Active Substance: FUROSEMIDE
     Indication: PRODUCT USED FOR UNKNOWN INDICATION
     Dosage: 20 MG, BID
     Route: 048
     Dates: start: 20150416, end: 20150725

REACTIONS (2)
  - Lactic acidosis [Fatal]
  - Hepatitis fulminant [Fatal]

NARRATIVE: CASE EVENT DATE: 20150724
